FAERS Safety Report 9385631 (Version 3)
Quarter: 2013Q4

REPORT INFORMATION
  Report Type: Report from Study
  Country: JP (occurrence: JP)
  Receive Date: 20130705
  Receipt Date: 20131022
  Transmission Date: 20140711
  Serious: No
  Sender: FDA-Public Use
  Company Number: JP-GLAXOSMITHKLINE-B0899698A

PATIENT
  Age: 63 Year
  Sex: Female

DRUGS (4)
  1. VOTRIENT 200MG [Suspect]
     Indication: LEIOMYOSARCOMA
     Dosage: 800MG PER DAY
     Route: 048
     Dates: start: 20130111, end: 20130408
  2. FAMOTIDINE [Concomitant]
     Route: 065
  3. PHENOBARBITAL [Concomitant]
     Indication: PROPHYLAXIS
     Route: 065
  4. RANMARK [Concomitant]
     Route: 058
     Dates: start: 20130401, end: 20130401

REACTIONS (2)
  - Malaise [Recovered/Resolved]
  - Diarrhoea [Recovered/Resolved]
